FAERS Safety Report 10576966 (Version 1)
Quarter: 2014Q4

REPORT INFORMATION
  Report Type: Spontaneous
  Country: US (occurrence: US)
  Receive Date: 20141111
  Receipt Date: 20141111
  Transmission Date: 20150529
  Serious: Yes (Other)
  Sender: FDA-Public Use
  Company Number: US-ASTRAZENECA-2014SE84516

PATIENT
  Age: 63 Year
  Sex: Female

DRUGS (6)
  1. CRESTOR [Suspect]
     Active Substance: ROSUVASTATIN CALCIUM
     Indication: ARTERIOSCLEROSIS
     Route: 048
     Dates: start: 200905
  2. CRESTOR [Suspect]
     Active Substance: ROSUVASTATIN CALCIUM
     Indication: ARTERIAL OCCLUSIVE DISEASE
     Route: 048
     Dates: start: 200905
  3. PLAVIX [Concomitant]
     Active Substance: CLOPIDOGREL BISULFATE
     Indication: ARTERIAL OCCLUSIVE DISEASE
     Dates: start: 200905
  4. HORMONE PRESCRIPTION MEDICATION [Concomitant]
     Indication: BREAST CANCER
  5. LOPRESSOR [Suspect]
     Active Substance: METOPROLOL TARTRATE
     Indication: ARTERIAL OCCLUSIVE DISEASE
     Route: 048
     Dates: start: 200905
  6. VITAMINS [Concomitant]
     Active Substance: VITAMINS

REACTIONS (31)
  - Gait disturbance [Unknown]
  - Quality of life decreased [Unknown]
  - Limb discomfort [Unknown]
  - General physical health deterioration [Unknown]
  - Hypoaesthesia [Not Recovered/Not Resolved]
  - Malaise [Unknown]
  - Renal disorder [Unknown]
  - Stress [Unknown]
  - Anxiety [Unknown]
  - Dysstasia [Unknown]
  - Depression [Unknown]
  - Muscle injury [Unknown]
  - Myalgia [Unknown]
  - Activities of daily living impaired [Unknown]
  - Feeling abnormal [Not Recovered/Not Resolved]
  - Urticaria [Recovered/Resolved]
  - Memory impairment [Unknown]
  - Pain [Unknown]
  - Sleep disorder [Unknown]
  - Breast cancer recurrent [Unknown]
  - Balance disorder [Unknown]
  - Peripheral swelling [Unknown]
  - Tremor [Unknown]
  - Psychiatric symptom [Unknown]
  - Fatigue [Unknown]
  - Fall [Unknown]
  - Ageusia [Unknown]
  - Anosmia [Unknown]
  - Urinary incontinence [Unknown]
  - Dizziness [Unknown]
  - Insomnia [Unknown]

NARRATIVE: CASE EVENT DATE: 2009
